FAERS Safety Report 9605580 (Version 2)
Quarter: 2013Q4

REPORT INFORMATION
  Report Type: Report from Study
  Country: US (occurrence: US)
  Receive Date: 20131008
  Receipt Date: 20131008
  Transmission Date: 20140711
  Serious: Yes (Death, Hospitalization)
  Sender: FDA-Public Use
  Company Number: GXBR2013US001555

PATIENT
  Age: 58 Year
  Sex: Female
  Weight: 129.71 kg

DRUGS (9)
  1. ENOXAPARIN SODIUM [Suspect]
     Indication: DEEP VEIN THROMBOSIS
     Dosage: 120 MG, QD
     Route: 058
     Dates: start: 20130627, end: 201308
  2. ENOXAPARIN SODIUM [Suspect]
     Dosage: 80 MG, BID
     Route: 058
     Dates: start: 201308
  3. ABRAXANE//PACLITAXEL [Concomitant]
     Indication: OVARIAN CANCER
     Dosage: 200 MG, BIW
  4. ZOFRAN [Concomitant]
     Indication: NAUSEA
     Dosage: UNK MG, UNK
  5. DILAUDID [Concomitant]
     Indication: PAIN
     Dosage: UNK MG, UNK
  6. PRILOSEC [Concomitant]
     Dosage: UNK MG, UNK
  7. LORAZEPAM [Concomitant]
     Dosage: UNK MG, UNK
  8. LASIX [Concomitant]
     Indication: OEDEMA PERIPHERAL
     Dosage: UNK MG, UNK
  9. DILTIAZEM [Concomitant]
     Indication: HYPERTENSION
     Dosage: UNK MG, UNK

REACTIONS (2)
  - Neoplasm malignant [Fatal]
  - Deep vein thrombosis [Recovering/Resolving]
